FAERS Safety Report 15537654 (Version 1)
Quarter: 2018Q4

REPORT INFORMATION
  Report Type: Report from Study
  Country: None (occurrence: BR)
  Receive Date: 20181022
  Receipt Date: 20181022
  Transmission Date: 20190205
  Serious: Yes (Death, Other)
  Sender: FDA-Public Use
  Company Number: BR-ABBVIE-18K-020-2525085-00

PATIENT
  Sex: Male

DRUGS (1)
  1. HUMIRA [Suspect]
     Active Substance: ADALIMUMAB
     Indication: PSORIATIC ARTHROPATHY
     Route: 058
     Dates: start: 20141201, end: 2018

REACTIONS (8)
  - Post procedural inflammation [Unknown]
  - Multiple organ dysfunction syndrome [Fatal]
  - Fall [Recovered/Resolved]
  - Postoperative wound complication [Unknown]
  - Renal disorder [Fatal]
  - Diabetes mellitus [Fatal]
  - Pain [Unknown]
  - Nosocomial infection [Unknown]

NARRATIVE: CASE EVENT DATE: 2018
